FAERS Safety Report 20838649 (Version 2)
Quarter: 2022Q2

REPORT INFORMATION
  Report Type: Report from Study
  Country: US (occurrence: US)
  Receive Date: 20220517
  Receipt Date: 20220520
  Transmission Date: 20220721
  Serious: No
  Sender: FDA-Public Use
  Company Number: US-NOVARTISTESTPH-NVSC2022US113316

PATIENT
  Sex: Female

DRUGS (2)
  1. PIQRAY [Suspect]
     Active Substance: ALPELISIB
     Indication: Breast cancer
     Dosage: 200 MG, QD
     Route: 048
     Dates: start: 20220426
  2. FULVESTRANT [Concomitant]
     Active Substance: FULVESTRANT
     Indication: Product used for unknown indication
     Dosage: UNK
     Route: 065

REACTIONS (12)
  - Tooth infection [Unknown]
  - Swelling [Unknown]
  - Dyspnoea [Unknown]
  - Dizziness [Unknown]
  - Muscle spasms [Unknown]
  - Toothache [Unknown]
  - Mucosal dryness [Unknown]
  - Fatigue [Unknown]
  - Asthenia [Unknown]
  - Rash [Recovering/Resolving]
  - Nausea [Unknown]
  - Diarrhoea [Unknown]
